FAERS Safety Report 24861607 (Version 2)
Quarter: 2025Q2

REPORT INFORMATION
  Report Type: Spontaneous
  Country: PL (occurrence: PL)
  Receive Date: 20250120
  Receipt Date: 20250416
  Transmission Date: 20250717
  Serious: Yes (Life-Threatening, Hospitalization, Other)
  Sender: BRISTOL MYERS SQUIBB
  Company Number: PL-BRISTOL-MYERS SQUIBB COMPANY-2025-005982

PATIENT
  Age: 59 Year
  Sex: Male

DRUGS (2)
  1. NIVOLUMAB [Suspect]
     Active Substance: NIVOLUMAB
     Indication: Renal cell carcinoma
     Dates: start: 20230426
  2. IPILIMUMAB [Suspect]
     Active Substance: IPILIMUMAB
     Indication: Renal cell carcinoma
     Dates: start: 20230426

REACTIONS (6)
  - Erythema multiforme [Recovering/Resolving]
  - Toxic epidermal necrolysis [Recovering/Resolving]
  - Muscular weakness [Unknown]
  - Gait disturbance [Unknown]
  - Decubitus ulcer [Unknown]
  - Sensitive skin [Unknown]

NARRATIVE: CASE EVENT DATE: 20230501
